FAERS Safety Report 7576229-0 (Version None)
Quarter: 2011Q2

REPORT INFORMATION
  Report Type: 
  Country: None (occurrence: None)
  Receive Date: 20110628
  Receipt Date: 20110118
  Transmission Date: 20111010
  Serious: Yes (Hospitalization)
  Sender: FDA-Public Use
  Company Number: US-BAYER-201020590NA

PATIENT
  Age: 27 Year
  Sex: Female
  Weight: 159.9 kg

DRUGS (16)
  1. FOSINOPRIL SODIUM [Concomitant]
     Indication: HYPERTENSION
     Dosage: 40 MG (DAILY DOSE), , ORAL
     Route: 048
     Dates: start: 20040331, end: 20060613
  2. ALBUTEROL SULFATE AUTOHALER [Concomitant]
     Indication: ASTHMA
     Dosage: 90 ?G (DAILY DOSE), , RESPIRATORY
     Route: 055
  3. BUPROPION HCL [Concomitant]
     Indication: DEEP VEIN THROMBOSIS
     Dosage: DAILY AS DIRECTED
     Route: 048
     Dates: start: 20050101, end: 20100615
  4. KETOROLAC TROMETHAMINE [Concomitant]
     Dosage: 10 MG (DAILY DOSE), , ORAL
     Route: 048
     Dates: start: 20060511
  5. PRILOSEC [Concomitant]
     Dosage: UNK
     Dates: start: 20080722
  6. MONTELUKAST SODIUM [Concomitant]
  7. YASMIN [Suspect]
     Indication: MENORRHAGIA
     Route: 048
     Dates: start: 20060322, end: 20060420
  8. NSAID'S [Concomitant]
     Dosage: UNK
     Dates: start: 20080311
  9. YASMIN [Suspect]
  10. SYNTHROID [Concomitant]
     Indication: PULMONARY EMBOLISM
     Dosage: 50 ?G (DAILY DOSE), , ORAL
     Route: 048
     Dates: start: 20030101, end: 20100615
  11. NAPROSYN [Concomitant]
     Dosage: UNK
     Dates: start: 20080223
  12. SINGULAIR [Concomitant]
     Indication: ASTHMA
     Dosage: 10 MG (DAILY DOSE), , ORAL
     Route: 048
     Dates: start: 20020101, end: 20100615
  13. ADVAIR DISKUS 100/50 [Concomitant]
     Dosage: 1-2 PUFFS
     Route: 055
     Dates: start: 20020101, end: 20100615
  14. FLUTICASONE W/SALMETEROL [Concomitant]
  15. CLONAZEPAM [Concomitant]
  16. LEVOTHYROXINE SODIUM [Concomitant]

REACTIONS (4)
  - PAIN IN EXTREMITY [None]
  - OEDEMA PERIPHERAL [None]
  - DEEP VEIN THROMBOSIS [None]
  - PULMONARY EMBOLISM [None]
